FAERS Safety Report 4335200-2 (Version None)
Quarter: 2004Q2

REPORT INFORMATION
  Report Type: 
  Country: None (occurrence: None)
  Receive Date: 20040408
  Receipt Date: 20040402
  Transmission Date: 20050107
  Serious: Yes (Other)
  Sender: FDA-Public Use
  Company Number: PHBS2004IT04621

PATIENT
  Age: 48 Year
  Sex: Female

DRUGS (2)
  1. ZOMETA [Suspect]
     Indication: METASTASES TO BONE
     Dosage: 4 MG, QMO
     Route: 042
     Dates: start: 20020502, end: 20031204
  2. XELODA [Concomitant]
     Dosage: 2500 MG/UNK DAY 1 TO 14/QMO
     Route: 048

REACTIONS (4)
  - DYSARTHRIA [None]
  - HYPOKINESIA [None]
  - OSTEOLYSIS [None]
  - PAIN IN JAW [None]
